FAERS Safety Report 11243434 (Version 1)
Quarter: 2015Q3

REPORT INFORMATION
  Report Type: Spontaneous
  Country: US (occurrence: US)
  Receive Date: 20150707
  Receipt Date: 20150707
  Transmission Date: 20151125
  Serious: No
  Sender: FDA-Public Use
  Company Number: US-AMGEN-USASP2015066324

PATIENT
  Age: 53 Year
  Sex: Male

DRUGS (10)
  1. ENBREL [Suspect]
     Active Substance: ETANERCEPT
     Indication: RHEUMATOID ARTHRITIS
     Dosage: 50 MG, QWK
     Route: 058
     Dates: end: 20150626
  2. MELOXICAM. [Concomitant]
     Active Substance: MELOXICAM
  3. METHOTREXATE [Concomitant]
     Active Substance: METHOTREXATE
  4. MORPHINE [Concomitant]
     Active Substance: MORPHINE
  5. BENAZEPRIL [Concomitant]
     Active Substance: BENAZEPRIL HYDROCHLORIDE
  6. DULOXETINE. [Concomitant]
     Active Substance: DULOXETINE
  7. FOLIC ACID. [Concomitant]
     Active Substance: FOLIC ACID
  8. NORTRIPTYLIN [Concomitant]
     Active Substance: NORTRIPTYLINE
  9. GABAPENTIN. [Concomitant]
     Active Substance: GABAPENTIN
  10. BUPROPION. [Concomitant]
     Active Substance: BUPROPION

REACTIONS (1)
  - Drug ineffective [Unknown]
